FAERS Safety Report 19571344 (Version 1)
Quarter: 2021Q3

REPORT INFORMATION
  Report Type: Spontaneous
  Country: GB (occurrence: GB)
  Receive Date: 20210715
  Receipt Date: 20210715
  Transmission Date: 20211014
  Serious: Yes (Life-Threatening)
  Sender: FDA-Public Use
  Company Number: GB-TEVA-2021-GB-1932177

PATIENT

DRUGS (8)
  1. OMEPRAZOLE. [Concomitant]
     Active Substance: OMEPRAZOLE
     Dosage: 40 MILLIGRAM DAILY; STRENGTH  : 40 MG
  2. SALBUTAMOL [Concomitant]
     Active Substance: ALBUTEROL
     Dosage: 20 MILLIGRAM DAILY; STRENGTH : 100 MICROGRAM, UNIT DOSE : 5 MG
     Route: 042
  3. GAVISCON ADVANCE [Concomitant]
     Active Substance: POTASSIUM BICARBONATE\SODIUM ALGINATE
     Dosage: 20 ML DAILY; 10 ML
  4. DEXAMETHASONE. [Suspect]
     Active Substance: DEXAMETHASONE
     Dosage: 6.6 MILLIGRAM DAILY; 100MG/5ML , VIALS
     Route: 042
  5. EZETIMIBE. [Suspect]
     Active Substance: EZETIMIBE
     Dosage: 10 MILLIGRAM DAILY; STRENGTH  : 10 MG
  6. METRONIDAZOLE. [Suspect]
     Active Substance: METRONIDAZOLE
     Dosage: 1500 MILLIGRAM DAILY; 100MG/20ML , AMPOULES, UNIT DOSE  : 500 MG
  7. CLARITHROMYCIN. [Suspect]
     Active Substance: CLARITHROMYCIN
     Dosage: 1000 MILLIGRAM DAILY; STRENGTH : 500 MG, UNIT DOSE : 500 MG
     Route: 065
  8. PARACETAMOL [Concomitant]
     Active Substance: ACETAMINOPHEN
     Dosage: 4 GRAM DAILY; STRENGTH  : 500 MG, UNIT DOSE  : 1 GRAM

REACTIONS (1)
  - Amylase increased [Unknown]
